FAERS Safety Report 9833364 (Version 2)
Quarter: 2014Q1

REPORT INFORMATION
  Report Type: Spontaneous
  Country: US (occurrence: US)
  Receive Date: 20140121
  Receipt Date: 20140121
  Transmission Date: 20141002
  Serious: Yes (Other)
  Sender: FDA-Public Use
  Company Number: US-GE HEALTHCARE MEDICAL DIAGNOSTICS-OSCN-PR-0803S-0176

PATIENT
  Age: 57 Year
  Sex: Female

DRUGS (6)
  1. OMNISCAN [Suspect]
     Indication: PRODUCT USED FOR UNKNOWN INDICATION
     Dates: start: 20041108, end: 20041108
  2. OMNISCAN [Suspect]
     Dates: start: 20041110, end: 20041110
  3. OMNISCAN [Suspect]
     Dates: start: 20050103, end: 20050103
  4. OMNISCAN [Suspect]
     Dates: start: 20050221, end: 20050221
  5. PROHANCE [Suspect]
     Indication: PRODUCT USED FOR UNKNOWN INDICATION
     Dates: start: 2003
  6. MULTIHANCE [Suspect]
     Indication: PRODUCT USED FOR UNKNOWN INDICATION
     Dates: start: 2003

REACTIONS (1)
  - Nephrogenic systemic fibrosis [Not Recovered/Not Resolved]
